FAERS Safety Report 17858806 (Version 2)
Quarter: 2020Q2

REPORT INFORMATION
  Report Type: Report from Study
  Country: None (occurrence: US)
  Receive Date: 20200604
  Receipt Date: 20200605
  Transmission Date: 20200714
  Serious: No
  Sender: FDA-Public Use
  Company Number: US-US WORLDMEDS, LLC-USW202001-000042

PATIENT
  Age: 64 Year
  Sex: Female

DRUGS (9)
  1. ALENDRONATE SODIUM. [Concomitant]
     Active Substance: ALENDRONATE SODIUM
  2. APOKYN [Suspect]
     Active Substance: APOMORPHINE HYDROCHLORIDE
     Indication: PARKINSON^S DISEASE
     Dosage: 30MG/3ML; 0.20 ML, 1-2 DAILY AS REQUIRED
     Route: 058
     Dates: start: 20191118, end: 20200109
  3. LOSARTAN. [Concomitant]
     Active Substance: LOSARTAN
  4. SELEGILINE [Concomitant]
     Active Substance: SELEGILINE
  5. FLUTICASONE. [Concomitant]
     Active Substance: FLUTICASONE
  6. XALATAN [Concomitant]
     Active Substance: LATANOPROST
     Dosage: .005% OU
  7. ROPINIROLE. [Concomitant]
     Active Substance: ROPINIROLE
     Dosage: .25 MG, ONCE DAILY
  8. HYDROCHLOROTHIAZIDE. [Concomitant]
     Active Substance: HYDROCHLOROTHIAZIDE
  9. CARBIDOPA/LEVODOPA [Concomitant]
     Active Substance: CARBIDOPA\LEVODOPA
     Dosage: 25/100, THRICE DAILY

REACTIONS (4)
  - Feeling cold [Recovering/Resolving]
  - Nausea [Recovering/Resolving]
  - Vomiting [Recovering/Resolving]
  - Increased viscosity of bronchial secretion [Recovering/Resolving]

NARRATIVE: CASE EVENT DATE: 20200101
